FAERS Safety Report 9401510 (Version 1)
Quarter: 2013Q3

REPORT INFORMATION
  Report Type: Report from Study
  Country: FR (occurrence: FR)
  Receive Date: 20130716
  Receipt Date: 20130716
  Transmission Date: 20140515
  Serious: Yes (Hospitalization)
  Sender: FDA-Public Use
  Company Number: FR-ROCHE-1247841

PATIENT
  Age: 18 Year
  Sex: Female
  Weight: 79.5 kg

DRUGS (17)
  1. TOCILIZUMAB [Suspect]
     Indication: RHEUMATOID ARTHRITIS
     Route: 041
     Dates: start: 20121015
  2. TOCILIZUMAB [Suspect]
     Route: 042
     Dates: start: 20130109
  3. TOCILIZUMAB [Suspect]
     Route: 042
     Dates: start: 20130206
  4. TOCILIZUMAB [Suspect]
     Route: 042
     Dates: start: 20130307
  5. TOCILIZUMAB [Suspect]
     Route: 042
     Dates: start: 20130403
  6. METHOTREXATE [Concomitant]
     Route: 065
  7. SPECIAFOLDINE [Concomitant]
     Route: 065
  8. TOPALGIC (FRANCE) [Concomitant]
     Route: 065
  9. ACUPAN [Concomitant]
     Route: 065
  10. DOLIPRANE [Concomitant]
     Route: 065
  11. PROFENID [Concomitant]
     Route: 065
  12. CALCIDOSE [Concomitant]
     Route: 065
  13. TERCIAN [Concomitant]
     Route: 065
  14. RISPERDAL [Concomitant]
     Route: 065
  15. DEPAKINE [Concomitant]
     Route: 065
  16. TEMESTA (FRANCE) [Concomitant]
     Route: 065
  17. LEPTICUR [Concomitant]
     Route: 065

REACTIONS (5)
  - Rhinitis [Recovered/Resolved]
  - Productive cough [Recovered/Resolved]
  - Aggression [Recovered/Resolved]
  - Depression [Recovered/Resolved]
  - Arthralgia [Unknown]
